FAERS Safety Report 15050712 (Version 2)
Quarter: 2019Q2

REPORT INFORMATION
  Report Type: Spontaneous
  Country: US (occurrence: US)
  Receive Date: 20180622
  Receipt Date: 20190621
  Transmission Date: 20190711
  Serious: No
  Sender: FDA-Public Use
  Company Number: US-ASTELLAS-2017US050408

PATIENT
  Sex: Female

DRUGS (1)
  1. VESICARE [Suspect]
     Active Substance: SOLIFENACIN SUCCINATE
     Indication: PRODUCT USED FOR UNKNOWN INDICATION
     Route: 065
     Dates: start: 201711

REACTIONS (5)
  - Drug ineffective [Unknown]
  - Oral mucosal blistering [Unknown]
  - Oropharyngeal pain [Unknown]
  - Constipation [Unknown]
  - Dry mouth [Unknown]
